FAERS Safety Report 8447907-6 (Version None)
Quarter: 2012Q2

REPORT INFORMATION
  Report Type: 
  Country: None (occurrence: None)
  Receive Date: 20120619
  Receipt Date: 20120605
  Transmission Date: 20120825
  Serious: Yes (Hospitalization)
  Sender: FDA-Public Use
  Company Number: FR-BAYER-2012-057894

PATIENT
  Age: 50 Year
  Sex: Male
  Weight: 80 kg

DRUGS (4)
  1. ASPIRIN [Suspect]
     Indication: ESSENTIAL THROMBOCYTHAEMIA
     Dosage: 75 MG, QD
     Route: 048
     Dates: start: 20070401, end: 20090101
  2. ANAGRELIDE HCL [Suspect]
     Indication: ESSENTIAL THROMBOCYTHAEMIA
     Dosage: UNK UNK, QD
     Route: 048
     Dates: start: 20080626, end: 20090101
  3. ANAGRELIDE HCL [Suspect]
     Dosage: UNK, QD
     Route: 048
     Dates: start: 20090101
  4. HYDROXYUREA [Suspect]
     Indication: ESSENTIAL THROMBOCYTHAEMIA
     Dosage: 1500 MG, QD
     Route: 048
     Dates: start: 20070523, end: 20080625

REACTIONS (4)
  - ANEURYSM RUPTURED [None]
  - HAEMORRHAGE [None]
  - ESSENTIAL THROMBOCYTHAEMIA [None]
  - BLOOD DISORDER [None]
